FAERS Safety Report 8885557 (Version 3)
Quarter: 2013Q2

REPORT INFORMATION
  Report Type: Spontaneous
  Country: US (occurrence: US)
  Receive Date: 20121101
  Receipt Date: 20130410
  Transmission Date: 20140414
  Serious: No
  Sender: FDA-Public Use
  Company Number: US-009507513-1210USA008421

PATIENT
  Age: 53 Year
  Sex: Male

DRUGS (13)
  1. VICTRELIS [Suspect]
     Indication: HEPATITIS C
     Dosage: 4 DF, Q8H
     Route: 048
     Dates: start: 20120910
  2. VICTRELIS [Suspect]
     Dosage: 800 MG, Q8H
     Route: 048
     Dates: start: 20120928
  3. PEGASYS [Suspect]
  4. RIBASPHERE [Suspect]
  5. CENTRUM (MINERALS (UNSPECIFIED) (+) VITAMINS (UNSPECIFIED)) [Concomitant]
  6. ZOLPIDEM TARTRATE [Concomitant]
  7. LISINOPRIL [Concomitant]
  8. PRILOSEC [Concomitant]
  9. CYCLOBENZAPRINE HYDROCHLORIDE [Concomitant]
  10. OXYCODONE [Concomitant]
  11. APAP [Concomitant]
  12. MAGNESIUM (UNSPECIFIED) [Concomitant]
  13. CYMBALTA [Concomitant]
     Dosage: UNK

REACTIONS (7)
  - Plicated tongue [Not Recovered/Not Resolved]
  - Dyspnoea [Unknown]
  - Dyspnoea [Unknown]
  - Depression [Unknown]
  - Mood altered [Unknown]
  - Fatigue [Not Recovered/Not Resolved]
  - Fatigue [Not Recovered/Not Resolved]
